FAERS Safety Report 9479539 (Version 1)
Quarter: 2013Q3

REPORT INFORMATION
  Report Type: Spontaneous
  Country: US (occurrence: US)
  Receive Date: 20130827
  Receipt Date: 20130827
  Transmission Date: 20140515
  Serious: Yes (Hospitalization, Other)
  Sender: FDA-Public Use
  Company Number: US-B.I. PHARMACEUTICALS,INC./RIDGEFIELD-2013-BI-26294BP

PATIENT
  Age: 91 Year
  Sex: Female
  Weight: 30 kg

DRUGS (9)
  1. AGGRENOX [Suspect]
     Indication: CEREBROVASCULAR ACCIDENT PROPHYLAXIS
     Dosage: STRENGTH: 25 MG / 200 MG; DAILY DOSE: 50 MG / 400 MG
     Route: 048
     Dates: start: 20110202
  2. VITAMIN B12 [Concomitant]
     Indication: VITAMIN B12 DEFICIENCY
     Route: 030
  3. BENICAR [Concomitant]
     Indication: HYPERTENSION
     Dosage: 20 MG
     Route: 048
  4. PLAVIX [Concomitant]
     Indication: CEREBROVASCULAR ACCIDENT PROPHYLAXIS
     Dosage: 75 MG
     Route: 048
     Dates: start: 2007, end: 2011
  5. SCOPOLAMINE [Concomitant]
     Dosage: FORMULATION : PATCH
     Route: 061
     Dates: end: 201308
  6. TRAMADOL [Concomitant]
     Dosage: 100 MG
     Route: 048
  7. DILTIAZEM [Concomitant]
     Indication: HYPERTENSION
     Dosage: 90 MG
     Route: 048
  8. COLACE [Concomitant]
     Dosage: 100 MG
     Route: 048
  9. ATENOLOL [Concomitant]
     Indication: HYPERTENSION
     Dosage: 50 MG
     Route: 048

REACTIONS (4)
  - Dehydration [Recovered/Resolved]
  - Atrial fibrillation [Recovered/Resolved]
  - Ischaemic stroke [Recovered/Resolved]
  - Dysphagia [Not Recovered/Not Resolved]
